FAERS Safety Report 6973674-9 (Version None)
Quarter: 2010Q3

REPORT INFORMATION
  Report Type: 
  Country: None (occurrence: None)
  Receive Date: 20100907
  Receipt Date: 20100824
  Transmission Date: 20110219
  Serious: Yes (Hospitalization)
  Sender: FDA-Public Use
  Company Number: AUR-APL-2010-02105 (0)

PATIENT
  Age: 87 Year
  Sex: Female

DRUGS (7)
  1. BISOPROLOL FUMARATE [Suspect]
     Indication: ATRIAL FIBRILLATION
     Dosage: 10 MG, DAILY, ORAL
     Route: 048
     Dates: end: 20100811
  2. BEZAFIBRATE [Concomitant]
  3. FINASTERIDE [Concomitant]
  4. HALOPERIDOL [Concomitant]
  5. OMEPRAZOLE [Concomitant]
  6. SIMVASTATIN [Concomitant]
  7. WARFARIN SODIUM [Concomitant]

REACTIONS (6)
  - AGITATION [None]
  - BLINDNESS [None]
  - BRADYCARDIA [None]
  - CONFUSIONAL STATE [None]
  - GASTROINTESTINAL HAEMORRHAGE [None]
  - SYNCOPE [None]
